FAERS Safety Report 5221900-9 (Version None)
Quarter: 2007Q1

REPORT INFORMATION
  Report Type: 
  Country: None (occurrence: None)
  Receive Date: 20070129
  Receipt Date: 20060130
  Transmission Date: 20070707
  Serious: No
  Sender: FDA-Public Use
  Company Number: US-GLAXOSMITHKLINE-A0516118A

PATIENT
  Age: 61 Year
  Sex: Female

DRUGS (5)
  1. WELLBUTRIN [Suspect]
     Indication: ANXIETY
     Route: 048
     Dates: start: 20030101
  2. PAROXETINE HCL [Suspect]
     Indication: DRUG USE FOR UNKNOWN INDICATION
     Route: 048
  3. PAXIL [Suspect]
     Dosage: 30MG PER DAY
     Route: 048
     Dates: start: 19940101
  4. XANAX [Concomitant]
  5. ZETIA [Concomitant]

REACTIONS (5)
  - ANXIETY [None]
  - HOT FLUSH [None]
  - HYPERHIDROSIS [None]
  - NAUSEA [None]
  - WEIGHT INCREASED [None]
